FAERS Safety Report 16089204 (Version 1)
Quarter: 2019Q1

REPORT INFORMATION
  Report Type: Spontaneous
  Country: RU (occurrence: RU)
  Receive Date: 20190319
  Receipt Date: 20190319
  Transmission Date: 20190418
  Serious: Yes (Other)
  Sender: FDA-Public Use
  Company Number: RU-SA-2019SA068526

PATIENT
  Age: 29 Year
  Sex: Male
  Weight: 69 kg

DRUGS (1)
  1. ALEMTUZUMAB [Suspect]
     Active Substance: ALEMTUZUMAB
     Dosage: 12 MG
     Route: 041

REACTIONS (1)
  - Urticaria vesiculosa [Recovering/Resolving]

NARRATIVE: CASE EVENT DATE: 20190207
